FAERS Safety Report 19277666 (Version 1)
Quarter: 2021Q2

REPORT INFORMATION
  Report Type: Spontaneous
  Country: AU (occurrence: AU)
  Receive Date: 20210520
  Receipt Date: 20210520
  Transmission Date: 20210717
  Serious: Yes (Other)
  Sender: FDA-Public Use
  Company Number: AU-ALKEM LABORATORIES LIMITED-AU-ALKEM-2021-02749

PATIENT

DRUGS (4)
  1. CINACALCET. [Suspect]
     Active Substance: CINACALCET
     Indication: PRODUCT USED FOR UNKNOWN INDICATION
     Dosage: UNK
     Route: 065
  2. CALCITRIOL. [Concomitant]
     Active Substance: CALCITRIOL
     Indication: PRODUCT USED FOR UNKNOWN INDICATION
     Dosage: UNK
     Route: 065
  3. CALCIUM CARBONATE. [Concomitant]
     Active Substance: CALCIUM CARBONATE
     Indication: PRODUCT USED FOR UNKNOWN INDICATION
     Dosage: UNK
     Route: 065
  4. COLECALCIFEROL [Concomitant]
     Active Substance: CHOLECALCIFEROL
     Indication: PRODUCT USED FOR UNKNOWN INDICATION
     Dosage: UNK
     Route: 065

REACTIONS (24)
  - Embolic stroke [Unknown]
  - Hypocalcaemia [Unknown]
  - Arrhythmia [Unknown]
  - Arteriovenous fistula thrombosis [Unknown]
  - Skin necrosis [Unknown]
  - Atrial flutter [Unknown]
  - Electrolyte imbalance [Unknown]
  - Hypertension [Unknown]
  - Cardiovascular disorder [Unknown]
  - Infection [Unknown]
  - Peritonitis [Unknown]
  - Acute kidney injury [Unknown]
  - Hungry bone syndrome [Unknown]
  - Fall [Unknown]
  - Acute myocardial infarction [Unknown]
  - Diarrhoea [Unknown]
  - Hyperkalaemia [Unknown]
  - Sepsis [Unknown]
  - Gastroenteritis [Unknown]
  - Hypercalcaemia [Unknown]
  - Jugular vein thrombosis [Unknown]
  - Atrial fibrillation [Unknown]
  - Haemorrhage [Unknown]
  - Pneumonia [Unknown]
